FAERS Safety Report 5308545-7 (Version None)
Quarter: 2007Q2

REPORT INFORMATION
  Report Type: 
  Country: None (occurrence: None)
  Receive Date: 20070420
  Receipt Date: 20070410
  Transmission Date: 20071010
  Serious: Yes (Hospitalization, Disabling)
  Sender: FDA-Public Use
  Company Number: OSCN-GE-0704S-0168

PATIENT
  Age: 78 Year
  Sex: Male
  Weight: 82 kg

DRUGS (6)
  1. OMNISCAN [Suspect]
     Indication: AORTIC ANEURYSM
     Dosage: 42 ML, SINGLE DOSE, I.V.
     Route: 042
     Dates: start: 20030620, end: 20030620
  2. OMNISCAN [Suspect]
     Indication: ISCHAEMIA
     Dosage: 42 ML, SINGLE DOSE, I.V.
     Route: 042
     Dates: start: 20030620, end: 20030620
  3. OMNISCAN [Suspect]
     Indication: PERIPHERAL ARTERIAL OCCLUSIVE DISEASE
     Dosage: 42 ML, SINGLE DOSE, I.V.
     Route: 042
     Dates: start: 20030620, end: 20030620
  4. OMNISCAN [Suspect]
     Indication: AORTIC ANEURYSM
     Dosage: 42 ML, SINGLE DOSE, I.V.
     Route: 042
     Dates: start: 20030626, end: 20030626
  5. OMNISCAN [Suspect]
     Indication: ISCHAEMIA
     Dosage: 42 ML, SINGLE DOSE, I.V.
     Route: 042
     Dates: start: 20030626, end: 20030626
  6. OMNISCAN [Suspect]
     Indication: PERIPHERAL ARTERIAL OCCLUSIVE DISEASE
     Dosage: 42 ML, SINGLE DOSE, I.V.
     Route: 042
     Dates: start: 20030626, end: 20030626

REACTIONS (9)
  - DIALYSIS [None]
  - HYPOPROTEINAEMIA [None]
  - INTESTINAL ISCHAEMIA [None]
  - MULTI-ORGAN FAILURE [None]
  - OEDEMA [None]
  - RENAL FAILURE ACUTE [None]
  - RESPIRATORY FAILURE [None]
  - SCLERODERMA [None]
  - UPPER GASTROINTESTINAL HAEMORRHAGE [None]
